FAERS Safety Report 7399792-1 (Version None)
Quarter: 2011Q2

REPORT INFORMATION
  Report Type: 
  Country: None (occurrence: None)
  Receive Date: 20110407
  Receipt Date: 20110330
  Transmission Date: 20111010
  Serious: Yes (Other)
  Sender: FDA-Public Use
  Company Number: US-B.I. PHARMACEUTICALS,INC./RIDGEFIELD-2011-BP-09681BP

PATIENT
  Sex: Female

DRUGS (17)
  1. ACIPHEX [Concomitant]
     Indication: GASTROOESOPHAGEAL REFLUX DISEASE
  2. ZOCOR [Concomitant]
     Indication: HYPERLIPIDAEMIA
  3. XANAX [Concomitant]
     Indication: ANXIETY
  4. OXYGEN [Concomitant]
  5. ALDACTONE [Concomitant]
     Indication: DIASTOLIC DYSFUNCTION
     Dosage: 37.5 MG
  6. POTASSIUM [Concomitant]
     Dosage: 80 MEQ
  7. COLACE [Concomitant]
  8. PRADAXA [Suspect]
     Indication: CEREBROVASCULAR ACCIDENT PROPHYLAXIS
     Dosage: 300 MG
     Route: 048
     Dates: start: 20110301
  9. TIKOSYN [Concomitant]
     Indication: ATRIAL FIBRILLATION
     Dosage: 0.25 MG
  10. XYZAL [Concomitant]
  11. BYSTOLIC [Concomitant]
     Dosage: 5 MG
  12. LUNESTA [Concomitant]
     Indication: INSOMNIA
  13. PREDNISONE [Concomitant]
     Dosage: 10 MG
  14. RANEXA [Concomitant]
     Indication: CARDIAC FAILURE CONGESTIVE
  15. ASPIRIN [Concomitant]
     Dosage: 81 MG
  16. BUMEX [Concomitant]
     Indication: DIASTOLIC DYSFUNCTION
  17. REGLAN [Concomitant]
     Indication: IMPAIRED GASTRIC EMPTYING

REACTIONS (4)
  - VASCULITIS [None]
  - EPISTAXIS [None]
  - PURPURA [None]
  - COMPRESSION FRACTURE [None]
